FAERS Safety Report 25007642 (Version 1)
Quarter: 2025Q1

REPORT INFORMATION
  Report Type: Spontaneous
  Country: US (occurrence: US)
  Receive Date: 20250225
  Receipt Date: 20250225
  Transmission Date: 20250408
  Serious: No
  Sender: TEVA
  Company Number: US-TEVA-VS-3296975

PATIENT
  Age: 52 Year
  Sex: Female

DRUGS (1)
  1. UZEDY [Suspect]
     Active Substance: RISPERIDONE
     Indication: Product used for unknown indication
     Dosage: SHOTS
     Route: 065

REACTIONS (4)
  - Injection site infection [Unknown]
  - Injection site erythema [Unknown]
  - Paraesthesia [Unknown]
  - Injection site pain [Unknown]
